FAERS Safety Report 19511164 (Version 1)
Quarter: 2021Q3

REPORT INFORMATION
  Report Type: Spontaneous
  Country: US (occurrence: US)
  Receive Date: 20210709
  Receipt Date: 20210709
  Transmission Date: 20211014
  Serious: Yes (Death)
  Sender: FDA-Public Use
  Company Number: None

PATIENT
  Age: 82 Year
  Sex: Female

DRUGS (1)
  1. SILDENAFIL TAB 20 [Suspect]
     Active Substance: SILDENAFIL
     Route: 048
     Dates: start: 20210326, end: 20210604

REACTIONS (1)
  - Death [None]

NARRATIVE: CASE EVENT DATE: 20210604
